FAERS Safety Report 14295894 (Version 2)
Quarter: 2018Q1

REPORT INFORMATION
  Report Type: Report from Study
  Country: CN (occurrence: CN)
  Receive Date: 20171218
  Receipt Date: 20180103
  Transmission Date: 20180509
  Serious: Yes (Other)
  Sender: FDA-Public Use
  Company Number: PHHY2017CN185207

PATIENT
  Age: 3 Year
  Sex: Female
  Weight: 16 kg

DRUGS (2)
  1. EXJADE [Suspect]
     Active Substance: DEFERASIROX
     Dosage: 7.8 MG/KG/D, UNK
     Route: 048
     Dates: start: 20171208
  2. EXJADE [Suspect]
     Active Substance: DEFERASIROX
     Indication: THALASSAEMIA BETA
     Dosage: 25 MG/KG, QD
     Route: 048
     Dates: start: 20161013, end: 20171208

REACTIONS (2)
  - Hepatocellular injury [Recovering/Resolving]
  - Renal injury [Unknown]

NARRATIVE: CASE EVENT DATE: 20171208
